FAERS Safety Report 23421817 (Version 7)
Quarter: 2024Q2

REPORT INFORMATION
  Report Type: Report from Study
  Country: US (occurrence: US)
  Receive Date: 20240119
  Receipt Date: 20240402
  Transmission Date: 20240716
  Serious: Yes (Hospitalization, Other)
  Sender: FDA-Public Use
  Company Number: US-GILEAD-2024-0659010

PATIENT
  Age: 49 Year
  Sex: Female

DRUGS (5)
  1. AMBRISENTAN [Suspect]
     Active Substance: AMBRISENTAN
     Indication: Pulmonary arterial hypertension
     Dosage: 10 MG, QD
     Route: 065
     Dates: start: 20200915
  2. REMODULIN [Suspect]
     Active Substance: TREPROSTINIL
     Indication: Product used for unknown indication
     Dosage: 5.5NG/KG/MIN
     Route: 058
     Dates: start: 20240125
  3. REMODULIN [Suspect]
     Active Substance: TREPROSTINIL
     Dosage: 33.5 NG/KG/MIN
     Route: 058
  4. REMODULIN [Suspect]
     Active Substance: TREPROSTINIL
     Dosage: 15 NG/KG/MIN
     Route: 058
  5. SILDENAFIL CITRATE [Concomitant]
     Active Substance: SILDENAFIL CITRATE

REACTIONS (23)
  - Respiratory failure [Recovering/Resolving]
  - Ammonia increased [Not Recovered/Not Resolved]
  - Hypoxia [Recovering/Resolving]
  - Depression [Recovering/Resolving]
  - Pancreatitis [Unknown]
  - Vomiting [Not Recovered/Not Resolved]
  - Gastrointestinal disorder [Unknown]
  - Infusion site pain [Recovering/Resolving]
  - Migraine [Recovering/Resolving]
  - Pain in extremity [Recovering/Resolving]
  - Abdominal distension [Unknown]
  - Intra-abdominal fluid collection [Unknown]
  - Diarrhoea [Unknown]
  - Flushing [Unknown]
  - Palpitations [Unknown]
  - Infusion site irritation [Unknown]
  - Feeling abnormal [Unknown]
  - Gastroenteritis viral [Recovering/Resolving]
  - Unevaluable event [Recovering/Resolving]
  - Erythema [Unknown]
  - Swelling face [Unknown]
  - Headache [Unknown]
  - Epistaxis [Unknown]

NARRATIVE: CASE EVENT DATE: 20240113
